FAERS Safety Report 19299255 (Version 1)
Quarter: 2021Q2

REPORT INFORMATION
  Report Type: Spontaneous
  Country: US (occurrence: US)
  Receive Date: 20210524
  Receipt Date: 20210524
  Transmission Date: 20210717
  Serious: No
  Sender: FDA-Public Use
  Company Number: US-SA-2021SA162585

PATIENT
  Sex: Female

DRUGS (2)
  1. TORSEMIDE. [Concomitant]
     Active Substance: TORSEMIDE
     Dosage: 6 DF, QD (6 PILLS)
     Route: 065
  2. LANTUS SOLOSTAR [Suspect]
     Active Substance: INSULIN GLARGINE
     Indication: TYPE 2 DIABETES MELLITUS
     Dosage: 18 IU, QD
     Route: 065

REACTIONS (4)
  - Visual impairment [Unknown]
  - Fluid retention [Recovered/Resolved]
  - Lung disorder [Recovered/Resolved]
  - Cardiac disorder [Recovered/Resolved]
